FAERS Safety Report 5974347-1 (Version None)
Quarter: 2008Q4

REPORT INFORMATION
  Report Type: 
  Country: None (occurrence: None)
  Receive Date: 20081201
  Receipt Date: 20081126
  Transmission Date: 20090506
  Serious: Yes (Life-Threatening, Other)
  Sender: FDA-Public Use
  Company Number: GB-PFIZER INC-2008092068

PATIENT
  Sex: Male
  Weight: 55 kg

DRUGS (8)
  1. ZYVOX [Suspect]
     Indication: STAPHYLOCOCCAL INFECTION
     Route: 042
     Dates: start: 20081021, end: 20081028
  2. ACETAMINOPHEN [Concomitant]
     Dates: start: 20081006, end: 20081022
  3. URSODIOL [Concomitant]
     Route: 048
     Dates: start: 20080926
  4. AMILORIDE HYDROCHLORIDE [Concomitant]
     Route: 048
     Dates: start: 20081014, end: 20081104
  5. ACYCLOVIR [Concomitant]
     Route: 048
     Dates: start: 20081007
  6. PANTOPRAZOLE SODIUM [Concomitant]
     Route: 042
     Dates: start: 20081009, end: 20081102
  7. ONDANSETRON [Concomitant]
     Dates: start: 20081015, end: 20081028
  8. HYOSCINE [Concomitant]
     Route: 061
     Dates: start: 20081016

REACTIONS (3)
  - BONE MARROW FAILURE [None]
  - BONE MARROW TRANSPLANT [None]
  - NEUTROPENIA [None]
